FAERS Safety Report 6926247-8 (Version None)
Quarter: 2010Q3

REPORT INFORMATION
  Report Type: 
  Country: None (occurrence: None)
  Receive Date: 20100811
  Receipt Date: 20100803
  Transmission Date: 20110219
  Serious: Yes (Death, Hospitalization)
  Sender: FDA-Public Use
  Company Number: 016593

PATIENT
  Sex: Female

DRUGS (8)
  1. KEPPRA [Suspect]
     Dosage: (2000 MG, KEPPRA 500MG ORAL), (1500 MG BID, KEPPRA 500MG ORAL)
     Route: 048
     Dates: start: 20060101, end: 20100501
  2. KEPPRA [Suspect]
     Dosage: (2000 MG, KEPPRA 500MG ORAL), (1500 MG BID, KEPPRA 500MG ORAL)
     Route: 048
     Dates: start: 20100501, end: 20100701
  3. DAFALGAN /00020001/ (DAFALGAN) (NOT SPECIFIED) [Suspect]
     Dosage: (500 MG TID, DAFALGAN 500MG ORAL)
     Route: 048
     Dates: start: 20100605, end: 20100701
  4. EQUANIL [Suspect]
     Dosage: (400 MG QD ORAL)
     Route: 048
     Dates: start: 20030101, end: 20100702
  5. LEPTICUR (LEPTICUR) [Suspect]
     Dosage: (10 MG BID ORAL)
     Route: 048
     Dates: start: 20100615
  6. EPITOMAX (EPITOMAX) [Suspect]
     Dosage: (500 MG (200MG IN THE MORNING, 100MG AT NOON AND 200MG AT NIGHT) ORAL)
     Route: 048
     Dates: start: 20010101
  7. URBANYL (URBANYL) (NOT SPECIFIED) [Suspect]
     Dosage: (5 MG QD ORAL)
     Route: 048
     Dates: start: 20100603, end: 20100618
  8. FLUANXOL /00109702/ (FLUANXOL LP) (NOT SPECIFIED) [Suspect]
     Dosage: (0.6667MG; 20MG/ONCE A MONTH INTRAMUSCULAR)
     Route: 030
     Dates: start: 20010101, end: 20100607

REACTIONS (5)
  - CONVULSION [None]
  - CYTOLYTIC HEPATITIS [None]
  - GASTROINTESTINAL DISORDER [None]
  - HEPATITIS ACUTE [None]
  - URINARY RETENTION [None]
